FAERS Safety Report 17977095 (Version 3)
Quarter: 2020Q3

REPORT INFORMATION
  Report Type: Spontaneous
  Country: US (occurrence: US)
  Receive Date: 20200703
  Receipt Date: 20200814
  Transmission Date: 20201103
  Serious: Yes (Hospitalization)
  Sender: FDA-Public Use
  Company Number: US-ROCHE-2633634

PATIENT
  Age: 32 Year
  Sex: Female

DRUGS (2)
  1. OCREVUS [Suspect]
     Active Substance: OCRELIZUMAB
     Indication: MULTIPLE SCLEROSIS
     Route: 042
     Dates: start: 201910
  2. OCREVUS [Suspect]
     Active Substance: OCRELIZUMAB
     Route: 042
     Dates: start: 20200513

REACTIONS (6)
  - Cough [Unknown]
  - Productive cough [Unknown]
  - Dyspnoea [Unknown]
  - Pneumonitis [Unknown]
  - Pyrexia [Unknown]
  - Headache [Unknown]
